FAERS Safety Report 4696929-X (Version None)
Quarter: 2005Q2

REPORT INFORMATION
  Report Type: 
  Country: None (occurrence: None)
  Receive Date: 20050622
  Receipt Date: 20041118
  Transmission Date: 20051028
  Serious: Yes (Death, Life-Threatening, Hospitalization, Other)
  Sender: FDA-Public Use
  Company Number: VE-BRISTOL-MYERS SQUIBB COMPANY-12771762

PATIENT
  Age: 50 Year
  Sex: Male
  Weight: 39 kg

DRUGS (4)
  1. ATAZANAVIR [Suspect]
     Indication: HIV INFECTION
     Dosage: THERAPY INTERRUPTED 12-NOV-2004, RESTARTED 17-NOV-2004
     Route: 048
     Dates: start: 20040816, end: 20041209
  2. STAVUDINE [Suspect]
     Indication: HIV INFECTION
     Dosage: THERAPY INTERRUPTED 12-NOV-2004, RESTARTED 17-NOV-2004
     Dates: start: 20040816, end: 20041209
  3. VIDEX [Suspect]
     Indication: HIV INFECTION
     Dosage: THERAPY INTERRUPTED 12-NOV-2004, RESTARTED 17-NOV-2004, INTERRUPTED 09-DEC-2004
     Dates: start: 20040816, end: 20041209
  4. RITONAVIR [Concomitant]
     Indication: HIV INFECTION
     Dosage: THERAPY INTERRUPTED 12-NOV-2004, RESTARTED 17-NOV-2004, INTERRUPTED 09-DEC-2004
     Dates: start: 20040816, end: 20041209

REACTIONS (7)
  - DEHYDRATION [None]
  - ELECTROLYTE IMBALANCE [None]
  - GASTROENTERITIS CRYPTOSPORIDIAL [None]
  - HYPOKALAEMIA [None]
  - LACTIC ACIDOSIS [None]
  - METABOLIC ACIDOSIS [None]
  - VOMITING [None]
